FAERS Safety Report 19032272 (Version 1)
Quarter: 2021Q1

REPORT INFORMATION
  Report Type: Spontaneous
  Country: US (occurrence: US)
  Receive Date: 20210319
  Receipt Date: 20210319
  Transmission Date: 20210420
  Serious: Yes (Hospitalization, Other)
  Sender: FDA-Public Use
  Company Number: US-PFIZER INC-2021269478

PATIENT
  Sex: Female

DRUGS (1)
  1. PROVERA [Suspect]
     Active Substance: MEDROXYPROGESTERONE ACETATE
     Indication: OLIGOMENORRHOEA
     Dosage: UNK

REACTIONS (1)
  - Embolism venous [Unknown]

NARRATIVE: CASE EVENT DATE: 2021
